FAERS Safety Report 6611551-3 (Version None)
Quarter: 2010Q1

REPORT INFORMATION
  Report Type: 
  Country: None (occurrence: None)
  Receive Date: 20100303
  Receipt Date: 20100226
  Transmission Date: 20100710
  Serious: Yes (Death, Hospitalization)
  Sender: FDA-Public Use
  Company Number: PHHY2010BR11411

PATIENT
  Sex: Female

DRUGS (2)
  1. FORASEQ [Suspect]
     Indication: LUNG DISORDER
     Dosage: ONCE A DAY AT NIGHT
  2. OXYGEN [Concomitant]
     Indication: EMPHYSEMA

REACTIONS (2)
  - DEATH [None]
  - LUNG DISORDER [None]
